FAERS Safety Report 20775880 (Version 3)
Quarter: 2022Q3

REPORT INFORMATION
  Report Type: Report from Study
  Country: AU (occurrence: AU)
  Receive Date: 20220502
  Receipt Date: 20220812
  Transmission Date: 20221027
  Serious: Yes (Hospitalization)
  Sender: FDA-Public Use
  Company Number: AU-NOVARTISPH-NVSC2022AU098273

PATIENT
  Sex: Female
  Weight: 25.7 kg

DRUGS (2)
  1. TRAMETINIB [Suspect]
     Active Substance: TRAMETINIB
     Indication: Glioma
     Dosage: 50 MCG/ML, QD (50MCG/ML ORAL SOLUTION. DOSE IS .025 MG//KG DAILY AND WEIGHT IS 22.4 KG SO DOSE IS 0.
     Route: 065
  2. TRAMETINIB [Suspect]
     Active Substance: TRAMETINIB
     Dosage: 0.025 MG/KG, QD (WEIGHT IS 25 KG SO DOSE IS 0.5 MG, QD)
     Route: 065
     Dates: start: 20210728

REACTIONS (2)
  - Skin infection [Unknown]
  - Weight decreased [Unknown]
